FAERS Safety Report 24241162 (Version 2)
Quarter: 2025Q1

REPORT INFORMATION
  Report Type: Report from Study
  Country: US (occurrence: US)
  Receive Date: 20240823
  Receipt Date: 20250204
  Transmission Date: 20250408
  Serious: Yes (Other)
  Sender: ABBVIE
  Company Number: US-ABBVIE-5888582

PATIENT
  Age: 80 Year
  Sex: Female

DRUGS (1)
  1. LINZESS [Suspect]
     Active Substance: LINACLOTIDE
     Indication: Product used for unknown indication
     Route: 048
     Dates: start: 20240411

REACTIONS (4)
  - Retinal detachment [Recovered/Resolved]
  - Musculoskeletal disorder [Unknown]
  - Illness [Unknown]
  - Visual impairment [Unknown]

NARRATIVE: CASE EVENT DATE: 20250101
